FAERS Safety Report 20230839 (Version 1)
Quarter: 2021Q4

REPORT INFORMATION
  Report Type: Report from Study
  Country: CA (occurrence: CA)
  Receive Date: 20211227
  Receipt Date: 20211227
  Transmission Date: 20220303
  Serious: Yes (Other)
  Sender: FDA-Public Use
  Company Number: CA-BIOGEN-2021BI01079804

PATIENT
  Sex: Female

DRUGS (1)
  1. TECFIDERA [Suspect]
     Active Substance: DIMETHYL FUMARATE
     Indication: Multiple sclerosis
     Route: 048
     Dates: start: 20210622

REACTIONS (5)
  - Facial bones fracture [Unknown]
  - Eye contusion [Unknown]
  - Somnambulism [Unknown]
  - Fall [Recovered/Resolved]
  - Abnormal dreams [Unknown]
